FAERS Safety Report 7318560-X (Version None)
Quarter: 2011Q1

REPORT INFORMATION
  Report Type: 
  Country: None (occurrence: None)
  Receive Date: 20110217
  Receipt Date: 20110217
  Transmission Date: 20110831
  Serious: No
  Sender: FDA-Public Use
  Company Number: None

PATIENT
  Age: 38 Year
  Sex: Male
  Weight: 96.6162 kg

DRUGS (2)
  1. CEFEPIME [Suspect]
     Indication: PSEUDOMONAS INFECTION
     Dosage: 2G Q8HR IV
     Route: 042
     Dates: start: 20110126, end: 20110209
  2. CEFEPIME [Suspect]
     Indication: CHRONIC SINUSITIS
     Dosage: 2G Q8HR IV
     Route: 042
     Dates: start: 20110126, end: 20110209

REACTIONS (2)
  - NEUTROPENIA [None]
  - THROMBOCYTOPENIA [None]
